FAERS Safety Report 21841993 (Version 2)
Quarter: 2023Q1

REPORT INFORMATION
  Report Type: Spontaneous
  Country: RU (occurrence: RU)
  Receive Date: 20230110
  Receipt Date: 20230119
  Transmission Date: 20230417
  Serious: Yes (Death, Life-Threatening, Hospitalization, Other)
  Sender: FDA-Public Use
  Company Number: RU-MLMSERVICE-20221223-3992980-1

PATIENT
  Age: 64 Year
  Sex: Female
  Weight: 62 kg

DRUGS (6)
  1. CARBOPLATIN [Suspect]
     Active Substance: CARBOPLATIN
     Indication: Squamous cell carcinoma of lung
     Dosage: AUC5 - 425 MG IV
     Route: 042
     Dates: start: 20210330, end: 202107
  2. PACLITAXEL [Suspect]
     Active Substance: PACLITAXEL
     Indication: Squamous cell carcinoma of lung
     Dosage: 280 MG IV
     Route: 042
     Dates: start: 20210330, end: 202107
  3. LEVOTHYROXINE [Concomitant]
     Active Substance: LEVOTHYROXINE
     Indication: Primary hypothyroidism
     Dosage: IN THE MORNING
  4. AZILSARTAN MEDOXOMIL, CHLORTHALIDONE [Concomitant]
     Indication: Hypertension
     Dosage: IN THE MORNING
  5. AMLODIPINE [Concomitant]
     Active Substance: AMLODIPINE BESYLATE
     Indication: Hypertension
     Dosage: IN THE MORNING
  6. METFORMIN [Concomitant]
     Active Substance: METFORMIN HYDROCHLORIDE
     Indication: Type 2 diabetes mellitus
     Dosage: IN THE MORNING

REACTIONS (2)
  - Atrial fibrillation [Fatal]
  - Cardiopulmonary failure [Fatal]

NARRATIVE: CASE EVENT DATE: 20210101
